FAERS Safety Report 12959201 (Version 1)
Quarter: 2016Q4

REPORT INFORMATION
  Report Type: Spontaneous
  Country: US (occurrence: US)
  Receive Date: 20161121
  Receipt Date: 20161121
  Transmission Date: 20170207
  Serious: No
  Sender: FDA-Public Use
  Company Number: US-BAYER-2016-222050

PATIENT
  Age: 88 Year
  Sex: Female
  Weight: 72.56 kg

DRUGS (4)
  1. TYLENOL ARTHRITIS PAIN [Concomitant]
     Active Substance: ACETAMINOPHEN
  2. CLARITIN [Suspect]
     Active Substance: LORATADINE
     Indication: NASOPHARYNGITIS
  3. CLARITIN [Suspect]
     Active Substance: LORATADINE
     Indication: HYPERSENSITIVITY
     Dosage: UNK
     Route: 048
     Dates: start: 20161117
  4. POTASSIUM [Concomitant]
     Active Substance: POTASSIUM

REACTIONS (2)
  - Mood altered [Not Recovered/Not Resolved]
  - Dizziness [Not Recovered/Not Resolved]

NARRATIVE: CASE EVENT DATE: 20161117
